FAERS Safety Report 17010319 (Version 1)
Quarter: 2019Q4

REPORT INFORMATION
  Report Type: Spontaneous
  Country: US (occurrence: US)
  Receive Date: 20190930
  Receipt Date: 20190930
  Transmission Date: 20200122
  Serious: Yes (Hospitalization)
  Sender: FDA-Public Use
  Company Number: None

PATIENT
  Age: 74 Year
  Sex: Male

DRUGS (1)
  1. SULFASALAZINE. [Suspect]
     Active Substance: SULFASALAZINE
     Indication: RASH
     Route: 048
     Dates: start: 20190620, end: 20190713

REACTIONS (8)
  - Constipation [None]
  - Pruritus [None]
  - Diarrhoea [None]
  - Cough [None]
  - Angina pectoris [None]
  - Thrombocytopenia [None]
  - Wheezing [None]
  - Hepatic enzyme increased [None]

NARRATIVE: CASE EVENT DATE: 20190707
